FAERS Safety Report 21257496 (Version 3)
Quarter: 2022Q4

REPORT INFORMATION
  Report Type: Spontaneous
  Country: US (occurrence: US)
  Receive Date: 20220826
  Receipt Date: 20221229
  Transmission Date: 20230113
  Serious: Yes (Life-Threatening, Hospitalization, Other)
  Sender: FDA-Public Use
  Company Number: US-EXELIXIS-CABO-22054796

PATIENT
  Age: 64 Year
  Sex: Male
  Weight: 108.9 kg

DRUGS (3)
  1. CABOMETYX [Suspect]
     Active Substance: CABOZANTINIB S-MALATE
     Indication: Renal cell carcinoma
     Dosage: UNK
     Dates: start: 20220622, end: 20220802
  2. NIVOLUMAB [Suspect]
     Active Substance: NIVOLUMAB
     Indication: Renal cell carcinoma
     Dosage: 3 MG/KG, Q3WEEKS
     Route: 042
     Dates: start: 20220622, end: 20220802
  3. IPILIMUMAB [Suspect]
     Active Substance: IPILIMUMAB
     Indication: Renal cell carcinoma
     Dosage: 1 MG/KG, Q3WEEKS
     Route: 042
     Dates: start: 20220622, end: 20220802

REACTIONS (12)
  - Cardiogenic shock [Unknown]
  - Left ventricle outflow tract obstruction [Unknown]
  - Myocarditis [Recovering/Resolving]
  - Immune thrombocytopenia [Recovering/Resolving]
  - Hyperhidrosis [Unknown]
  - Anisocytosis [Unknown]
  - Microcytosis [Unknown]
  - Dysacusis [Unknown]
  - Productive cough [Unknown]
  - Cough [Unknown]
  - Melaena [Unknown]
  - Anaemia [Not Recovered/Not Resolved]

NARRATIVE: CASE EVENT DATE: 20220801
